FAERS Safety Report 4976212-5 (Version None)
Quarter: 2006Q2

REPORT INFORMATION
  Report Type: 
  Country: None (occurrence: None)
  Receive Date: 20060419
  Receipt Date: 20060403
  Transmission Date: 20061013
  Serious: Yes (Hospitalization)
  Sender: FDA-Public Use
  Company Number: US-BRISTOL-MYERS SQUIBB COMPANY-13334826

PATIENT
  Age: 42 Year
  Sex: Male
  Weight: 140 kg

DRUGS (2)
  1. ERBITUX [Suspect]
     Indication: SQUAMOUS CELL CARCINOMA
     Dates: start: 20060308, end: 20060308
  2. CISPLATIN [Suspect]
     Indication: SQUAMOUS CELL CARCINOMA
     Dates: start: 20060308, end: 20060308

REACTIONS (2)
  - HAEMOPTYSIS [None]
  - PNEUMONIA [None]
